FAERS Safety Report 8707979 (Version 2)
Quarter: 2012Q4

REPORT INFORMATION
  Report Type: 
  Country: US (occurrence: US)
  Receive Date: 20120806
  Receipt Date: 20121025
  Transmission Date: 20130627
  Serious: Yes (Other)
  Sender: FDA-Public Use
  Company Number: US-009507513-1208USA000233

PATIENT
  Sex: Female

DRUGS (3)
  1. PEG-INTRON [Suspect]
     Indication: HEPATITIS C
     Dosage: UNK
     Dates: start: 20120505, end: 20120806
  2. REBETOL [Suspect]
     Indication: HEPATITIS C
     Dosage: UNK
     Route: 048
     Dates: start: 20120505, end: 20120806
  3. VICTRELIS [Suspect]
     Indication: HEPATITIS C
     Dosage: UNK
     Route: 048
     Dates: start: 20120603, end: 20120706

REACTIONS (10)
  - Haematemesis [Unknown]
  - Weight decreased [Unknown]
  - Headache [Unknown]
  - Tooth infection [Unknown]
  - Tooth extraction [Unknown]
  - White blood cell count decreased [Unknown]
  - Skin injury [Unknown]
  - Pain in jaw [Unknown]
  - Vomiting [Unknown]
  - Drug ineffective [Unknown]
